FAERS Safety Report 11135064 (Version 4)
Quarter: 2015Q3

REPORT INFORMATION
  Report Type: Spontaneous
  Country: ES (occurrence: ES)
  Receive Date: 20150525
  Receipt Date: 20150710
  Transmission Date: 20151125
  Serious: Yes (Other)
  Sender: FDA-Public Use
  Company Number: ES-AMGEN-ESPSP2015047460

PATIENT
  Age: 58 Year
  Sex: Female

DRUGS (1)
  1. PROLIA [Suspect]
     Active Substance: DENOSUMAB
     Indication: OSTEOPOROSIS
     Dosage: UNK
     Route: 065
     Dates: start: 201411

REACTIONS (7)
  - Intervertebral disc protrusion [Unknown]
  - Lumbar vertebral fracture [Unknown]
  - Toothache [Unknown]
  - Sciatica [Unknown]
  - Lumbar spinal stenosis [Unknown]
  - Vascular calcification [Unknown]
  - Extraskeletal ossification [Unknown]
